FAERS Safety Report 25383004 (Version 1)
Quarter: 2025Q2

REPORT INFORMATION
  Report Type: Spontaneous
  Country: GB (occurrence: GB)
  Receive Date: 20250602
  Receipt Date: 20250602
  Transmission Date: 20250717
  Serious: Yes (Disabling, Other)
  Sender: Kenvue
  Company Number: None

PATIENT

DRUGS (2)
  1. CETIRIZINE HYDROCHLORIDE [Suspect]
     Active Substance: CETIRIZINE HYDROCHLORIDE
     Indication: Product used for unknown indication
     Route: 065
  2. CETIRIZINE HYDROCHLORIDE [Suspect]
     Active Substance: CETIRIZINE HYDROCHLORIDE
     Indication: Product used for unknown indication
     Route: 065

REACTIONS (13)
  - Medication error [Unknown]
  - Withdrawal syndrome [Recovered/Resolved with Sequelae]
  - Anxiety [Recovered/Resolved]
  - Anxiety disorder [Recovered/Resolved with Sequelae]
  - Weight decreased [Recovered/Resolved]
  - Brain fog [Recovered/Resolved with Sequelae]
  - Poor quality sleep [Recovered/Resolved]
  - Nausea [Recovered/Resolved]
  - Dizziness [Recovered/Resolved]
  - Fatigue [Recovered/Resolved with Sequelae]
  - Post-traumatic stress disorder [Recovered/Resolved]
  - Memory impairment [Recovered/Resolved]
  - Pruritus [Recovered/Resolved]

NARRATIVE: CASE EVENT DATE: 20210101
